FAERS Safety Report 18510362 (Version 1)
Quarter: 2020Q4

REPORT INFORMATION
  Report Type: Report from Study
  Country: US (occurrence: US)
  Receive Date: 20201117
  Receipt Date: 20201117
  Transmission Date: 20210114
  Serious: Yes (Death, Hospitalization, Other)
  Sender: FDA-Public Use
  Company Number: NVSC2020US304748

PATIENT
  Age: 67 Year
  Sex: Male
  Weight: 77.7 kg

DRUGS (1)
  1. KYMRIAH [Suspect]
     Active Substance: TISAGENLECLEUCEL
     Indication: DIFFUSE LARGE B-CELL LYMPHOMA
     Dosage: 19 ML
     Route: 042
     Dates: start: 20201027, end: 20201027

REACTIONS (13)
  - Hypoxia [Fatal]
  - Neurotoxicity [Not Recovered/Not Resolved]
  - Hypoaesthesia [Unknown]
  - Staphylococcal infection [Fatal]
  - Cytokine release syndrome [Not Recovered/Not Resolved]
  - Serum ferritin increased [Unknown]
  - Dyspnoea [Fatal]
  - Atrial flutter [Recovered/Resolved]
  - Respiratory distress [Fatal]
  - Cytokine release syndrome [Recovered/Resolved with Sequelae]
  - Central nervous system lymphoma [Unknown]
  - Beta haemolytic streptococcal infection [Unknown]
  - Headache [Unknown]

NARRATIVE: CASE EVENT DATE: 20201027
